FAERS Safety Report 9231836 (Version 2)
Quarter: 2013Q2

REPORT INFORMATION
  Report Type: Report from Study
  Country: US (occurrence: US)
  Receive Date: 20130415
  Receipt Date: 20130625
  Transmission Date: 20140414
  Serious: Yes (Hospitalization)
  Sender: FDA-Public Use
  Company Number: US-ACTELION-A-US2013-81659

PATIENT
  Age: 73 Year
  Sex: Female

DRUGS (2)
  1. VELETRI [Suspect]
     Indication: PULMONARY ARTERIAL HYPERTENSION
     Dosage: 19.5 NG/KG, PER MIN
     Route: 042
     Dates: start: 20101210
  2. COUMADIN [Concomitant]

REACTIONS (7)
  - Gastrointestinal disorder [Unknown]
  - Medical device complication [Unknown]
  - Device infusion issue [Recovering/Resolving]
  - Drug dose omission [Recovering/Resolving]
  - Chest pain [Recovering/Resolving]
  - Dyspnoea [Recovering/Resolving]
  - Malaise [Recovering/Resolving]
